FAERS Safety Report 19682379 (Version 2)
Quarter: 2021Q3

REPORT INFORMATION
  Report Type: Report from Study
  Country: CA (occurrence: CA)
  Receive Date: 20210810
  Receipt Date: 20210820
  Transmission Date: 20211014
  Serious: Yes (Life-Threatening, Hospitalization, Other)
  Sender: FDA-Public Use
  Company Number: CA-ASTRAZENECA-2020SE98656

PATIENT
  Age: 66 Year
  Sex: Female

DRUGS (10)
  1. SYMBICORT [Suspect]
     Active Substance: BUDESONIDE\FORMOTEROL FUMARATE DIHYDRATE
     Indication: PRODUCT USED FOR UNKNOWN INDICATION
     Dosage: UNKNOWN DOSE UNKNOWN
     Route: 055
  2. ROSUVASTATIN. [Suspect]
     Active Substance: ROSUVASTATIN
     Indication: PRODUCT USED FOR UNKNOWN INDICATION
     Route: 048
  3. METFORMIN [Suspect]
     Active Substance: METFORMIN HYDROCHLORIDE
     Indication: PRODUCT USED FOR UNKNOWN INDICATION
     Route: 065
  4. OMEPRAZOLE. [Suspect]
     Active Substance: OMEPRAZOLE
     Indication: PRODUCT USED FOR UNKNOWN INDICATION
     Route: 048
  5. MEPOLIZUMAB [Suspect]
     Active Substance: MEPOLIZUMAB
     Indication: ASTHMA
     Route: 042
     Dates: start: 20180409
  6. MYLAN AMLODIPINE [Suspect]
     Active Substance: AMLODIPINE BESYLATE
     Indication: PRODUCT USED FOR UNKNOWN INDICATION
     Route: 065
  7. CANDESARTAN. [Suspect]
     Active Substance: CANDESARTAN
     Indication: PRODUCT USED FOR UNKNOWN INDICATION
     Route: 048
  8. ASPIRIN. [Suspect]
     Active Substance: ASPIRIN
     Indication: PRODUCT USED FOR UNKNOWN INDICATION
     Route: 065
  9. VENTOLIN [Suspect]
     Active Substance: ALBUTEROL SULFATE
     Indication: PRODUCT USED FOR UNKNOWN INDICATION
     Route: 065
  10. MYRBETRIQ [Suspect]
     Active Substance: MIRABEGRON
     Indication: PRODUCT USED FOR UNKNOWN INDICATION
     Route: 065

REACTIONS (42)
  - Dyspnoea [Unknown]
  - Influenza [Unknown]
  - Pneumonia [Unknown]
  - Drug ineffective [Unknown]
  - Blood count abnormal [Unknown]
  - Sinus congestion [Unknown]
  - Urinary tract disorder [Unknown]
  - Chronic sinusitis [Unknown]
  - Obstructive airways disorder [Unknown]
  - Pharyngeal erythema [Unknown]
  - Sputum retention [Unknown]
  - Acute coronary syndrome [Unknown]
  - Aspiration [Unknown]
  - Lung disorder [Unknown]
  - Pyrexia [Unknown]
  - Oropharyngeal pain [Unknown]
  - Therapeutic product effect incomplete [Unknown]
  - Respiratory tract infection [Unknown]
  - Productive cough [Unknown]
  - Cough [Unknown]
  - Insomnia [Unknown]
  - Atelectasis [Unknown]
  - Dysphagia [Unknown]
  - Renal impairment [Unknown]
  - Forced vital capacity decreased [Unknown]
  - Hypoventilation [Unknown]
  - Upper respiratory tract inflammation [Unknown]
  - Myalgia [Unknown]
  - Hyperglycaemia [Unknown]
  - Bronchial wall thickening [Unknown]
  - Cardiac disorder [Unknown]
  - Respiratory distress [Unknown]
  - Sinonasal obstruction [Unknown]
  - Asthma [Unknown]
  - Chest pain [Unknown]
  - Goitre [Unknown]
  - Oesophageal disorder [Unknown]
  - Oral disorder [Unknown]
  - Paranasal sinus discomfort [Unknown]
  - Upper airway obstruction [Unknown]
  - Wheezing [Unknown]
  - Anxiety [Unknown]
